FAERS Safety Report 10687765 (Version 1)
Quarter: 2015Q1

REPORT INFORMATION
  Report Type: Spontaneous
  Country: FR (occurrence: FR)
  Receive Date: 20150102
  Receipt Date: 20150102
  Transmission Date: 20150720
  Serious: Yes (Hospitalization)
  Sender: FDA-Public Use
  Company Number: FR-JNJFOC-20141214064

PATIENT
  Age: 52 Year
  Sex: Female

DRUGS (7)
  1. KEPPRA [Concomitant]
     Active Substance: LEVETIRACETAM
     Route: 065
  2. PARIET [Concomitant]
     Active Substance: RABEPRAZOLE SODIUM
     Route: 065
  3. SOLUPRED [Suspect]
     Active Substance: PREDNISOLONE
     Indication: BREAST CANCER METASTATIC
     Route: 048
  4. VIMPAT [Concomitant]
     Active Substance: LACOSAMIDE
     Route: 065
  5. VITAMIN D3 [Concomitant]
     Active Substance: CHOLECALCIFEROL
     Dosage: 20MG GASTRO-RESISTANT TABLET
     Route: 065
  6. CAELYX [Suspect]
     Active Substance: DOXORUBICIN HYDROCHLORIDE
     Indication: BREAST CANCER METASTATIC
     Route: 042
     Dates: start: 20140811, end: 20140811
  7. SOLUPRED [Suspect]
     Active Substance: PREDNISOLONE
     Indication: BREAST CANCER METASTATIC
     Route: 048

REACTIONS (5)
  - Limb injury [Recovered/Resolved]
  - Herpes virus infection [Recovered/Resolved]
  - Skin lesion [Recovered/Resolved]
  - Metastases to central nervous system [Unknown]
  - Mucosal inflammation [Recovered/Resolved]

NARRATIVE: CASE EVENT DATE: 20140902
